FAERS Safety Report 8280995-9 (Version None)
Quarter: 2012Q2

REPORT INFORMATION
  Report Type: 
  Country: None (occurrence: None)
  Receive Date: 20120412
  Receipt Date: 20120402
  Transmission Date: 20120825
  Serious: Yes (Hospitalization)
  Sender: FDA-Public Use
  Company Number: JP-BAXTER-2012BH007312

PATIENT
  Sex: Male
  Weight: 58 kg

DRUGS (2)
  1. DIANEAL-N PD-4 1.5 PD SOLUTION [Suspect]
     Route: 033
     Dates: start: 20111005
  2. EXTRANEAL [Suspect]
     Route: 033
     Dates: start: 20111005

REACTIONS (2)
  - INFECTIOUS PERITONITIS [None]
  - PERITONEAL DIALYSIS COMPLICATION [None]
